FAERS Safety Report 8955039 (Version 2)
Quarter: 2012Q4

REPORT INFORMATION
  Report Type: 
  Country: DE (occurrence: DE)
  Receive Date: 20121207
  Receipt Date: 20121221
  Transmission Date: 20130627
  Serious: Yes (Hospitalization)
  Sender: FDA-Public Use
  Company Number: DE-B.I. PHARMACEUTICALS,INC./RIDGEFIELD-2012-DE-02919DE

PATIENT
  Age: 68 Year
  Sex: Female
  Weight: 59 kg

DRUGS (3)
  1. PRADAXA [Suspect]
     Indication: ATRIAL FLUTTER
     Dosage: 300 NR
     Route: 048
     Dates: start: 201201, end: 20121113
  2. PRADAXA [Suspect]
     Indication: ECHOCARDIOGRAM
  3. BISOPROLOL [Concomitant]
     Indication: ATRIAL FLUTTER
     Dosage: 5 NR
     Route: 048
     Dates: start: 201201

REACTIONS (2)
  - Cholestasis [Not Recovered/Not Resolved]
  - Transaminases increased [Unknown]
